FAERS Safety Report 8136851-X (Version None)
Quarter: 2012Q1

REPORT INFORMATION
  Report Type: 
  Country: None (occurrence: None)
  Receive Date: 20120214
  Receipt Date: 20120201
  Transmission Date: 20120608
  Serious: Yes (Other)
  Sender: FDA-Public Use
  Company Number: US-PFIZER INC-2011314991

PATIENT
  Age: 59 Year
  Sex: Male

DRUGS (2)
  1. SILDENAFIL CITRATE [Suspect]
     Dosage: 50 MG, UNK
  2. SILDENAFIL CITRATE [Suspect]
     Indication: ERECTILE DYSFUNCTION
     Dosage: 50-100 MG AS NEEDED

REACTIONS (5)
  - HYPOTENSION [None]
  - SPINAL CORD INJURY [None]
  - SPINAL CORD INFARCTION [None]
  - DIPLEGIA [None]
  - ACTIVITIES OF DAILY LIVING IMPAIRED [None]
